FAERS Safety Report 7371561-8 (Version None)
Quarter: 2011Q1

REPORT INFORMATION
  Report Type: 
  Country: None (occurrence: None)
  Receive Date: 20110324
  Receipt Date: 20110319
  Transmission Date: 20110831
  Serious: No
  Sender: FDA-Public Use
  Company Number: US-TEVA-272783USA

PATIENT
  Sex: Female
  Weight: 65.83 kg

DRUGS (3)
  1. FIORICET [Concomitant]
     Indication: MIGRAINE
     Dates: start: 20090101
  2. PLAN B ONE-STEP [Suspect]
     Indication: POST COITAL CONTRACEPTION
     Route: 048
  3. XANAX [Concomitant]
     Indication: INSOMNIA
     Dates: start: 20080101

REACTIONS (2)
  - BREAST PAIN [None]
  - MENSTRUATION IRREGULAR [None]
